FAERS Safety Report 13047034 (Version 1)
Quarter: 2016Q4

REPORT INFORMATION
  Report Type: Spontaneous
  Country: GR (occurrence: GR)
  Receive Date: 20161220
  Receipt Date: 20161220
  Transmission Date: 20170207
  Serious: Yes (Hospitalization)
  Sender: FDA-Public Use
  Company Number: GR-TEVA-719109ISR

PATIENT
  Age: 47 Year

DRUGS (1)
  1. LEVETIRACETAM. [Suspect]
     Active Substance: LEVETIRACETAM
     Indication: PROPHYLAXIS

REACTIONS (2)
  - Drug reaction with eosinophilia and systemic symptoms [Unknown]
  - Rectal haemorrhage [Unknown]
